FAERS Safety Report 10556002 (Version 3)
Quarter: 2016Q2

REPORT INFORMATION
  Report Type: Report from Study
  Country: US (occurrence: US)
  Receive Date: 20141030
  Receipt Date: 20160502
  Transmission Date: 20160815
  Serious: No
  Sender: FDA-Public Use
  Company Number: US-AMGEN-USASL2014082391

PATIENT
  Age: 30 Year
  Sex: Female

DRUGS (1)
  1. ENBREL [Suspect]
     Active Substance: ETANERCEPT
     Indication: PSORIATIC ARTHROPATHY
     Dosage: 50 MG, QWK
     Route: 065
     Dates: start: 20140610

REACTIONS (14)
  - Pain [Recovered/Resolved]
  - Pyrexia [Recovered/Resolved]
  - Stress [Not Recovered/Not Resolved]
  - Adverse event [Recovered/Resolved]
  - Psoriasis [Not Recovered/Not Resolved]
  - Fatigue [Recovered/Resolved]
  - Malaise [Not Recovered/Not Resolved]
  - Decreased appetite [Not Recovered/Not Resolved]
  - Mobility decreased [Recovered/Resolved]
  - Rhinorrhoea [Not Recovered/Not Resolved]
  - Feeling abnormal [Recovered/Resolved]
  - Lethargy [Recovered/Resolved]
  - Hyperhidrosis [Recovered/Resolved]
  - Chills [Recovered/Resolved]

NARRATIVE: CASE EVENT DATE: 201409
